FAERS Safety Report 5079813-1 (Version None)
Quarter: 2006Q3

REPORT INFORMATION
  Report Type: 
  Country: None (occurrence: None)
  Receive Date: 20060720
  Receipt Date: 20050615
  Transmission Date: 20061208
  Serious: Yes (Other)
  Sender: FDA-Public Use
  Company Number: 2005079687

PATIENT
  Sex: Female

DRUGS (6)
  1. CELEBREX [Suspect]
     Indication: OSTEOARTHRITIS
     Dosage: 200 MG (200 MG,1 IN 1 D),ORAL
     Route: 048
  2. LASIX [Concomitant]
  3. ANASTROZOLE [Concomitant]
  4. SYNTHROID [Concomitant]
  5. VALSARTAN [Concomitant]
  6. POTASSIUM (POTASSIUM) [Concomitant]

REACTIONS (2)
  - BREAST CANCER [None]
  - THERAPEUTIC RESPONSE DECREASED [None]
